FAERS Safety Report 21166840 (Version 1)
Quarter: 2022Q3

REPORT INFORMATION
  Report Type: Spontaneous
  Country: US (occurrence: US)
  Receive Date: 20220803
  Receipt Date: 20220803
  Transmission Date: 20221027
  Serious: No
  Sender: FDA-Public Use
  Company Number: US-SAREPTA THERAPEUTICS INC.-SRP2022-002318

PATIENT
  Age: 11 Year
  Sex: Male
  Weight: 101.36 kg

DRUGS (6)
  1. AMONDYS 45 [Suspect]
     Active Substance: CASIMERSEN
     Indication: Duchenne muscular dystrophy
     Dosage: 2500 MILLIGRAM, WEEKLY
     Route: 042
     Dates: start: 20210909, end: 20220505
  2. AMONDYS 45 [Suspect]
     Active Substance: CASIMERSEN
     Dosage: 3000 MILLIGRAM, WEEKLY
     Route: 042
     Dates: start: 20220524
  3. CALCIUM CITRATE [Concomitant]
     Active Substance: CALCIUM CITRATE
     Indication: Product used for unknown indication
     Dosage: 1 DOSAGE FORM (500-500), QD
     Route: 048
     Dates: start: 20210921
  4. EMFLAZA [Concomitant]
     Active Substance: DEFLAZACORT
     Indication: Product used for unknown indication
     Dosage: 22.75 MG/ML, QD
     Route: 048
     Dates: start: 20210921
  5. SODIUM CHLORIDE [Concomitant]
     Active Substance: SODIUM CHLORIDE
     Indication: Product used for unknown indication
     Dosage: 0.9 PERCENT 10 ML POSIFLSH 10 ML PIV AS DIRECTED
     Dates: start: 20220113
  6. LIDOCAINE\PRILOCAINE [Concomitant]
     Active Substance: LIDOCAINE\PRILOCAINE
     Indication: Product used for unknown indication
     Dosage: 2.5/2.5% 30 GM 5 GM, AS DIRECTED RX
     Route: 061
     Dates: start: 20220113

REACTIONS (2)
  - Product communication issue [Unknown]
  - No adverse event [Unknown]

NARRATIVE: CASE EVENT DATE: 20220524
